FAERS Safety Report 25873135 (Version 1)
Quarter: 2025Q4

REPORT INFORMATION
  Report Type: Spontaneous
  Country: US (occurrence: US)
  Receive Date: 20251002
  Receipt Date: 20251002
  Transmission Date: 20260117
  Serious: No
  Sender: BAYER HEALTHCARE LLC
  Company Number: US-BAYER-2025A129460

PATIENT
  Age: 4 Year
  Sex: Male

DRUGS (1)
  1. CLARITIN [Suspect]
     Active Substance: LORATADINE
     Dosage: THREE 15 MILLIGRAM TABLETS IN A 24 HOUR PERIOD

REACTIONS (1)
  - Extra dose administered [Unknown]
